FAERS Safety Report 15869348 (Version 2)
Quarter: 2019Q1

REPORT INFORMATION
  Report Type: Report from Study
  Country: US (occurrence: US)
  Receive Date: 20190125
  Receipt Date: 20190225
  Transmission Date: 20190417
  Serious: Yes (Hospitalization)
  Sender: FDA-Public Use
  Company Number: US-EISAI MEDICAL RESEARCH-EC-2018-041638

PATIENT
  Age: 66 Year
  Sex: Male

DRUGS (4)
  1. LENVIMA [Suspect]
     Active Substance: LENVATINIB
     Indication: THYROID CANCER
     Route: 048
     Dates: start: 20180611, end: 20180630
  2. LENVIMA [Suspect]
     Active Substance: LENVATINIB
     Route: 048
     Dates: start: 20181001, end: 20181130
  3. LENVIMA [Suspect]
     Active Substance: LENVATINIB
     Route: 048
     Dates: start: 20190110
  4. LENVIMA [Suspect]
     Active Substance: LENVATINIB
     Route: 048
     Dates: start: 20180701, end: 2018

REACTIONS (22)
  - Somnolence [Not Recovered/Not Resolved]
  - Back pain [Not Recovered/Not Resolved]
  - Fatigue [Recovered/Resolved]
  - Blood pressure fluctuation [Recovering/Resolving]
  - Nephrolithiasis [Unknown]
  - Diarrhoea [Not Recovered/Not Resolved]
  - Urosepsis [Unknown]
  - Pain in extremity [Not Recovered/Not Resolved]
  - Arthralgia [Not Recovered/Not Resolved]
  - Hypotension [Not Recovered/Not Resolved]
  - Amnesia [Recovering/Resolving]
  - Dysgeusia [Not Recovered/Not Resolved]
  - Pneumonia [Unknown]
  - Tremor [Not Recovered/Not Resolved]
  - Confusional state [Recovering/Resolving]
  - Skin exfoliation [Not Recovered/Not Resolved]
  - Irritability [Not Recovered/Not Resolved]
  - Dizziness [Recovered/Resolved]
  - Renal impairment [Not Recovered/Not Resolved]
  - Dehydration [Recovered/Resolved]
  - Dysstasia [Not Recovered/Not Resolved]
  - Malignant neoplasm progression [Not Recovered/Not Resolved]

NARRATIVE: CASE EVENT DATE: 201806
